FAERS Safety Report 24698741 (Version 1)
Quarter: 2024Q4

REPORT INFORMATION
  Report Type: Spontaneous
  Country: GB (occurrence: GB)
  Receive Date: 20241205
  Receipt Date: 20241205
  Transmission Date: 20250115
  Serious: Yes (Other)
  Sender: TEVA
  Company Number: None

PATIENT
  Age: 84 Year
  Sex: Female
  Weight: 60 kg

DRUGS (6)
  1. LEVOTHYROXINE [Suspect]
     Active Substance: LEVOTHYROXINE
     Indication: Hypothyroidism
     Dosage: 50 MG ONCE A DAY, BATCH/LOT NUMBER: SN 10220385996683 LOT 49024
     Route: 065
     Dates: start: 20241120
  2. WARFARIN [Concomitant]
     Active Substance: WARFARIN
     Indication: Adverse drug reaction
     Dosage: FOR ANTI-COAGULANT
     Dates: start: 20100101
  3. FLUTICASONE [Concomitant]
     Active Substance: FLUTICASONE
     Indication: Asthma
     Dates: start: 19810101
  4. SIMVASTATIN [Concomitant]
     Active Substance: SIMVASTATIN
     Indication: Blood cholesterol
     Dates: start: 20100101
  5. FLECAINIDE [Concomitant]
     Active Substance: FLECAINIDE
     Indication: Adverse drug reaction
     Dosage: FOR P.A.F
     Dates: start: 20110101
  6. VENTOLIN [Concomitant]
     Active Substance: ALBUTEROL SULFATE
     Indication: Asthma
     Dates: start: 19730101

REACTIONS (6)
  - Malaise [Not Recovered/Not Resolved]
  - Palpitations [Not Recovered/Not Resolved]
  - Dizziness [Not Recovered/Not Resolved]
  - Headache [Not Recovered/Not Resolved]
  - Anxiety [Not Recovered/Not Resolved]
  - Medication error [Unknown]

NARRATIVE: CASE EVENT DATE: 20241120
